FAERS Safety Report 9040275 (Version 1)
Quarter: 2013Q1

REPORT INFORMATION
  Report Type: Report from Study
  Country: US (occurrence: US)
  Receive Date: 20130129
  Receipt Date: 20130129
  Transmission Date: 20140127
  Serious: No
  Sender: FDA-Public Use
  Company Number: US-ABBOTT-12P-163-0895391-00

PATIENT
  Age: 41 Year
  Sex: Female

DRUGS (3)
  1. HUMIRA 40 MG/0.8 ML PEN [Suspect]
     Indication: CROHN^S DISEASE
     Dates: start: 201102
  2. OMEPRAZOLE [Concomitant]
     Indication: CROHN^S DISEASE
  3. OMEPRAZOLE [Concomitant]
     Indication: ULCER

REACTIONS (3)
  - Pain [Not Recovered/Not Resolved]
  - Musculoskeletal stiffness [Not Recovered/Not Resolved]
  - Ulcer [Unknown]
